FAERS Safety Report 6400499-5 (Version None)
Quarter: 2009Q4

REPORT INFORMATION
  Report Type: 
  Country: None (occurrence: None)
  Receive Date: 20091014
  Receipt Date: 20091006
  Transmission Date: 20100525
  Serious: Yes (Disabling)
  Sender: FDA-Public Use
  Company Number: PL-SANOFI-SYNTHELABO-F01200900878

PATIENT
  Sex: Male

DRUGS (3)
  1. TAMSULOSIN [Concomitant]
     Indication: URINARY TRACT DISORDER
     Dosage: 0.4 MG
     Route: 048
     Dates: start: 20070103
  2. CASODEX [Suspect]
     Indication: PROSTATE CANCER
     Dosage: 50 MG
     Route: 048
     Dates: start: 20070329
  3. ELIGARD [Suspect]
     Indication: PROSTATE CANCER
     Dosage: 22.5 MG
     Route: 058

REACTIONS (2)
  - BONE PAIN [None]
  - SPINAL FRACTURE [None]
